FAERS Safety Report 25118116 (Version 1)
Quarter: 2025Q1

REPORT INFORMATION
  Report Type: Spontaneous
  Country: US (occurrence: US)
  Receive Date: 20250325
  Receipt Date: 20250325
  Transmission Date: 20250409
  Serious: Yes (Other)
  Sender: PFIZER
  Company Number: US-PFIZER INC-PV202500035198

PATIENT
  Age: 73 Year
  Sex: Female

DRUGS (1)
  1. XELJANZ XR [Suspect]
     Active Substance: TOFACITINIB CITRATE

REACTIONS (4)
  - Gastrointestinal haemorrhage [Recovering/Resolving]
  - COVID-19 [Unknown]
  - Influenza [Unknown]
  - Viral infection [Unknown]

NARRATIVE: CASE EVENT DATE: 20250201
